FAERS Safety Report 7086633-5 (Version None)
Quarter: 2010Q4

REPORT INFORMATION
  Report Type: 
  Country: None (occurrence: None)
  Receive Date: 20101105
  Receipt Date: 20101029
  Transmission Date: 20110411
  Serious: Yes (Hospitalization, Other)
  Sender: FDA-Public Use
  Company Number: CHPA2010US17089

PATIENT
  Age: 83 Year
  Sex: Female
  Weight: 65.76 kg

DRUGS (2)
  1. GAS-X PREVENTION (NCH) [Suspect]
     Indication: FLATULENCE
     Dosage: 1 DF, ONCE/SINGLE
     Route: 048
     Dates: start: 20101103
  2. GAS-X PREVENTION (NCH) [Suspect]
     Dosage: 1 DF, ONCE/SINGLE
     Route: 048
     Dates: start: 20101023, end: 20101023

REACTIONS (11)
  - ANAPHYLACTIC SHOCK [None]
  - APHASIA [None]
  - DYSPHAGIA [None]
  - LOCAL SWELLING [None]
  - OFF LABEL USE [None]
  - ORAL PAIN [None]
  - SLEEP DISORDER [None]
  - SWELLING FACE [None]
  - SWOLLEN TONGUE [None]
  - THROAT TIGHTNESS [None]
  - TONGUE PARALYSIS [None]
